FAERS Safety Report 25745145 (Version 1)
Quarter: 2025Q3

REPORT INFORMATION
  Report Type: Spontaneous
  Country: CN (occurrence: CN)
  Receive Date: 20250901
  Receipt Date: 20250901
  Transmission Date: 20251020
  Serious: Yes (Other)
  Sender: BAUSCH AND LOMB
  Company Number: CN-BAUSCHBL-2025BNL015085

PATIENT
  Age: 58 Year
  Sex: Female
  Weight: 60 kg

DRUGS (3)
  1. BRIMONIDINE TARTRATE [Suspect]
     Active Substance: BRIMONIDINE TARTRATE
     Indication: Product used for unknown indication
     Route: 047
     Dates: start: 2023, end: 20250811
  2. CARTEOLOL HYDROCHLORIDE [Suspect]
     Active Substance: CARTEOLOL HYDROCHLORIDE
     Indication: Ocular hypertension
     Dosage: 2 GTT, DAILY
     Route: 047
     Dates: start: 20230508
  3. LATANOPROST [Suspect]
     Active Substance: LATANOPROST
     Indication: Ocular hypertension
     Route: 047
     Dates: start: 2024, end: 20250811

REACTIONS (1)
  - Keratitis [Recovering/Resolving]

NARRATIVE: CASE EVENT DATE: 20250216
